FAERS Safety Report 13013044 (Version 2)
Quarter: 2017Q1

REPORT INFORMATION
  Report Type: Spontaneous
  Country: JP (occurrence: JP)
  Receive Date: 20161209
  Receipt Date: 20170202
  Transmission Date: 20170428
  Serious: Yes (Death, Life-Threatening, Other)
  Sender: FDA-Public Use
  Company Number: JP-ELI_LILLY_AND_COMPANY-JP201608013430

PATIENT
  Age: 0 Day
  Weight: 2.88 kg

DRUGS (4)
  1. CYMBALTA [Suspect]
     Active Substance: DULOXETINE HYDROCHLORIDE
     Indication: DEPRESSION
     Dosage: 20 MG, QD
     Route: 064
     Dates: end: 20150112
  2. CYMBALTA [Suspect]
     Active Substance: DULOXETINE HYDROCHLORIDE
     Dosage: 20 MG, QD
     Route: 063
     Dates: start: 20150113
  3. BENZALIN                           /00036201/ [Suspect]
     Active Substance: NITRAZEPAM
     Dosage: 5 MG, QD
     Route: 063
     Dates: start: 20150113
  4. BENZALIN                           /00036201/ [Suspect]
     Active Substance: NITRAZEPAM
     Indication: INSOMNIA
     Dosage: 5 MG, QD
     Route: 064
     Dates: end: 20150112

REACTIONS (10)
  - Neonatal asphyxia [Unknown]
  - Foetal heart rate decreased [Unknown]
  - Irritability [Recovering/Resolving]
  - Hypertonia [Recovering/Resolving]
  - Foetal exposure during pregnancy [Recovered/Resolved]
  - Exposure during breast feeding [Recovered/Resolved]
  - Drug withdrawal syndrome neonatal [Recovering/Resolving]
  - Cardio-respiratory arrest [Recovered/Resolved]
  - Death [Fatal]
  - Tremor [Recovering/Resolving]

NARRATIVE: CASE EVENT DATE: 20150113
